FAERS Safety Report 14539111 (Version 4)
Quarter: 2019Q4

REPORT INFORMATION
  Report Type: Spontaneous
  Country: IL (occurrence: IL)
  Receive Date: 20180216
  Receipt Date: 20191010
  Transmission Date: 20200122
  Serious: Yes (Hospitalization)
  Sender: FDA-Public Use
  Company Number: IL-ACTELION-A-CH2018-165857

PATIENT
  Age: 90 Year
  Sex: Female

DRUGS (13)
  1. PRADAXA [Concomitant]
     Active Substance: DABIGATRAN ETEXILATE MESYLATE
  2. OPSUMIT [Suspect]
     Active Substance: MACITENTAN
     Indication: PULMONARY ARTERIAL HYPERTENSION
     Dosage: 10 MG, QD
     Route: 048
     Dates: start: 20171225, end: 20190908
  3. REMERON [Concomitant]
     Active Substance: MIRTAZAPINE
  4. BONDORMIN [Concomitant]
     Active Substance: BROTIZOLAM
  5. LAXADIN [Concomitant]
     Active Substance: BISACODYL
  6. FOLIC ACID. [Concomitant]
     Active Substance: FOLIC ACID
  7. SIMOVIL [Concomitant]
     Active Substance: SIMVASTATIN
  8. CALTRATE [Concomitant]
     Active Substance: CALCIUM CARBONATE
  9. FUSID [Concomitant]
  10. REVATIO [Concomitant]
     Active Substance: SILDENAFIL CITRATE
  11. EUTHYROX [Concomitant]
     Active Substance: LEVOTHYROXINE SODIUM
  12. DIGOXIN. [Concomitant]
     Active Substance: DIGOXIN
  13. EVITOL [Concomitant]

REACTIONS (4)
  - Oedema peripheral [Not Recovered/Not Resolved]
  - Upper respiratory tract infection [Recovered/Resolved]
  - Localised oedema [Recovering/Resolving]
  - Dyspnoea [Recovering/Resolving]

NARRATIVE: CASE EVENT DATE: 20180112
